FAERS Safety Report 19736609 (Version 7)
Quarter: 2022Q3

REPORT INFORMATION
  Report Type: Report from Study
  Country: US (occurrence: US)
  Receive Date: 20210823
  Receipt Date: 20220908
  Transmission Date: 20221027
  Serious: No
  Sender: FDA-Public Use
  Company Number: NVSC2021US190033

PATIENT
  Age: 61 Year
  Sex: Female

DRUGS (1)
  1. COSENTYX [Suspect]
     Active Substance: SECUKINUMAB
     Indication: Psoriasis
     Dosage: UNK ,QW
     Route: 058
     Dates: start: 20210803

REACTIONS (7)
  - Urinary tract infection [Unknown]
  - Fatigue [Unknown]
  - Cystitis [Unknown]
  - Weight decreased [Unknown]
  - Psoriasis [Unknown]
  - Sinus congestion [Unknown]
  - Localised infection [Unknown]

NARRATIVE: CASE EVENT DATE: 20210914
